FAERS Safety Report 9820817 (Version 1)
Quarter: 2014Q1

REPORT INFORMATION
  Report Type: Spontaneous
  Country: US (occurrence: US)
  Receive Date: 20140116
  Receipt Date: 20140116
  Transmission Date: 20141002
  Serious: No
  Sender: FDA-Public Use
  Company Number: US-PFIZER INC-2014014214

PATIENT
  Age: 5 Decade
  Sex: Male

DRUGS (1)
  1. LYRICA [Suspect]
     Indication: COUGH
     Dosage: UNK

REACTIONS (3)
  - Off label use [Unknown]
  - Fatigue [Unknown]
  - Weight increased [Unknown]
